FAERS Safety Report 9953572 (Version 2)
Quarter: 2014Q1

REPORT INFORMATION
  Report Type: Spontaneous
  Country: IT (occurrence: IT)
  Receive Date: 20140304
  Receipt Date: 20140304
  Transmission Date: 20141002
  Serious: Yes (Death)
  Sender: FDA-Public Use
  Company Number: IT-SA-2011SA077810

PATIENT
  Age: 72 Year
  Sex: Female

DRUGS (9)
  1. MULTAQ [Suspect]
     Indication: SUPRAVENTRICULAR TACHYCARDIA
     Route: 048
     Dates: start: 20110515, end: 20110604
  2. MULTAQ [Suspect]
     Indication: SUPRAVENTRICULAR EXTRASYSTOLES
     Route: 048
     Dates: start: 20110515, end: 20110604
  3. TAPAZOLE [Concomitant]
     Indication: HYPERTHYROIDISM
     Route: 048
     Dates: start: 2010, end: 20110604
  4. TAPAZOLE [Concomitant]
     Indication: HYPERTHYROIDISM
     Route: 048
     Dates: start: 20110604, end: 20110613
  5. MESTINON [Concomitant]
     Indication: MYASTHENIA GRAVIS
     Route: 048
     Dates: start: 2010, end: 20110613
  6. DELTACORTENE [Concomitant]
     Indication: MYASTHENIA GRAVIS
     Route: 048
     Dates: start: 2010, end: 20110613
  7. PANTORC [Concomitant]
     Indication: PROPHYLAXIS AGAINST GASTROINTESTINAL ULCER
     Route: 048
     Dates: start: 2010, end: 20110613
  8. SEROQUEL [Concomitant]
     Indication: DEPRESSION
     Route: 048
     Dates: start: 2010
  9. MULTIVITAMIN AND MINERAL SUPPLEMENT [Concomitant]
     Indication: FUNCTIONAL GASTROINTESTINAL DISORDER
     Route: 065
     Dates: start: 20101201, end: 20110604

REACTIONS (5)
  - Hepatotoxicity [Fatal]
  - Hyperbilirubinaemia [Fatal]
  - Transaminases increased [Fatal]
  - Gamma-glutamyltransferase increased [Fatal]
  - Blood alkaline phosphatase increased [Fatal]
